FAERS Safety Report 9633107 (Version 1)
Quarter: 2013Q4

REPORT INFORMATION
  Report Type: Spontaneous
  Country: JP (occurrence: JP)
  Receive Date: 20131018
  Receipt Date: 20131018
  Transmission Date: 20140711
  Serious: Yes (Hospitalization)
  Sender: FDA-Public Use
  Company Number: JP-ROCHE-1289085

PATIENT
  Age: 77 Year
  Sex: Female

DRUGS (4)
  1. AVASTIN [Suspect]
     Indication: MALIGNANT GLIOMA
     Route: 041
     Dates: start: 20130730
  2. ADALAT CR [Concomitant]
     Dosage: DOSAGE IS UNCERTAIN.
     Route: 065
  3. NORVASC [Concomitant]
     Dosage: DOSAGE IS UNCERTAIN.
     Route: 065
  4. ITOROL [Concomitant]
     Dosage: DOSAGE IS UNCERTAIN.
     Route: 065

REACTIONS (1)
  - Femoral neck fracture [Recovering/Resolving]
